FAERS Safety Report 9782969 (Version 3)
Quarter: 2014Q1

REPORT INFORMATION
  Report Type: Report from Study
  Country: US (occurrence: US)
  Receive Date: 20131226
  Receipt Date: 20140102
  Transmission Date: 20141002
  Serious: Yes (Other)
  Sender: FDA-Public Use
  Company Number: US-PFIZER INC-2013366905

PATIENT
  Age: 64 Year
  Sex: Female

DRUGS (2)
  1. AMIODARONE HCL [Suspect]
     Indication: VENTRICULAR TACHYCARDIA
     Dosage: 400 MG, DAILY
     Route: 065
  2. AMIODARONE HCL [Suspect]
     Indication: ARRHYTHMIA

REACTIONS (2)
  - Optic neuropathy [Unknown]
  - Keratopathy [Not Recovered/Not Resolved]
